FAERS Safety Report 4780958-1 (Version None)
Quarter: 2005Q3

REPORT INFORMATION
  Report Type: 
  Country: None (occurrence: None)
  Receive Date: 20050926
  Receipt Date: 20050926
  Transmission Date: 20060218
  Serious: Yes (Other)
  Sender: FDA-Public Use
  Company Number: None

PATIENT
  Age: 52 Year
  Sex: Female
  Weight: 63.5036 kg

DRUGS (2)
  1. ADVAIR DISKUS 250/50 [Suspect]
     Indication: ASTHMA
     Dosage: 250/50 Q AM/PM INHAL
     Route: 055
     Dates: start: 20031025, end: 20050923
  2. ADVAIR DISKUS 250/50 [Suspect]
     Indication: CHRONIC OBSTRUCTIVE PULMONARY DISEASE
     Dosage: 250/50 Q AM/PM INHAL
     Route: 055
     Dates: start: 20031025, end: 20050923

REACTIONS (4)
  - COUGH [None]
  - DEVICE MALFUNCTION [None]
  - SPUTUM RETENTION [None]
  - WRONG TECHNIQUE IN DRUG USAGE PROCESS [None]
